FAERS Safety Report 7471139-1 (Version None)
Quarter: 2011Q2

REPORT INFORMATION
  Report Type: 
  Country: None (occurrence: None)
  Receive Date: 20110510
  Receipt Date: 20110503
  Transmission Date: 20111010
  Serious: Yes (Other)
  Sender: FDA-Public Use
  Company Number: CA-PFIZER INC-2011057961

PATIENT
  Age: 40 Year
  Sex: Female
  Weight: 65.76 kg

DRUGS (1)
  1. IBUPROFEN [Suspect]
     Dosage: UNK
     Route: 048

REACTIONS (4)
  - ACCIDENTAL EXPOSURE [None]
  - CORNEAL ABRASION [None]
  - EYE BURNS [None]
  - IMPAIRED WORK ABILITY [None]
